FAERS Safety Report 5659583-6 (Version None)
Quarter: 2008Q1

REPORT INFORMATION
  Report Type: 
  Country: None (occurrence: None)
  Receive Date: 20080311
  Receipt Date: 20080229
  Transmission Date: 20080703
  Serious: Yes (Other)
  Sender: FDA-Public Use
  Company Number: US-JNJFOC-20080300176

PATIENT
  Age: 32 Year
  Sex: Female
  Weight: 55.79 kg

DRUGS (3)
  1. REMICADE [Suspect]
     Route: 042
  2. REMICADE [Suspect]
     Indication: RHEUMATOID ARTHRITIS
     Dosage: INFUSIONS 1 AND 2, DATES UNSPECIFIED
     Route: 042
  3. LEFLUNOMIDE [Concomitant]

REACTIONS (5)
  - BACK PAIN [None]
  - BRONCHOSPASM [None]
  - DYSPHAGIA [None]
  - HYPOAESTHESIA ORAL [None]
  - INFUSION RELATED REACTION [None]
